FAERS Safety Report 20512314 (Version 1)
Quarter: 2022Q1

REPORT INFORMATION
  Report Type: Spontaneous
  Country: AZ (occurrence: AZ)
  Receive Date: 20220224
  Receipt Date: 20220224
  Transmission Date: 20220423
  Serious: Yes (Death)
  Sender: FDA-Public Use
  Company Number: AZ-NOVARTISPH-NVSC2022AZ042426

PATIENT
  Sex: Female

DRUGS (1)
  1. GLIVEC [Suspect]
     Active Substance: IMATINIB MESYLATE
     Indication: Chronic myeloid leukaemia
     Dosage: 400 MG (4 X 100MG TABLETS)
     Route: 065

REACTIONS (3)
  - Colon cancer [Fatal]
  - Second primary malignancy [Fatal]
  - Metastases to liver [Fatal]
